FAERS Safety Report 12660732 (Version 2)
Quarter: 2016Q3

REPORT INFORMATION
  Report Type: Spontaneous
  Country: US (occurrence: US)
  Receive Date: 20160817
  Receipt Date: 20160901
  Transmission Date: 20161109
  Serious: No
  Sender: FDA-Public Use
  Company Number: US-RELYPSA-RLY2016001148

PATIENT
  Sex: Female

DRUGS (1)
  1. VELTASSA [Suspect]
     Active Substance: PATIROMER
     Indication: HYPERKALAEMIA
     Dosage: 8.6 G, QD
     Route: 048
     Dates: start: 20160401, end: 201605

REACTIONS (3)
  - Diarrhoea [Unknown]
  - Vomiting [Unknown]
  - Nausea [Unknown]
